FAERS Safety Report 7863110-2 (Version None)
Quarter: 2011Q4

REPORT INFORMATION
  Report Type: 
  Country: None (occurrence: None)
  Receive Date: 20111027
  Receipt Date: 20101110
  Transmission Date: 20120403
  Serious: No
  Sender: FDA-Public Use
  Company Number: US-AMGEN-KDL437305

PATIENT
  Age: 58 Year
  Sex: Female

DRUGS (4)
  1. ENBREL [Suspect]
     Indication: RHEUMATOID ARTHRITIS
     Dosage: 50 MG, QWK
     Route: 058
     Dates: start: 20030101
  2. CLONAZEPAM [Concomitant]
  3. DICLOFENAC POTASSIUM [Concomitant]
  4. ENBREL [Suspect]
     Dates: start: 20100804, end: 20100804

REACTIONS (1)
  - INJECTION SITE PAIN [None]
